FAERS Safety Report 4571809-9 (Version None)
Quarter: 2005Q1

REPORT INFORMATION
  Report Type: 
  Country: None (occurrence: None)
  Receive Date: 20050207
  Receipt Date: 20050130
  Transmission Date: 20050727
  Serious: Yes (Other)
  Sender: FDA-Public Use
  Company Number: US-JNJFOC-20050200578

PATIENT
  Sex: Male

DRUGS (2)
  1. TYLENOL (CAPLET) [Suspect]
     Route: 049
  2. TYLENOL (CAPLET) [Suspect]
     Indication: ARTHRITIS
     Route: 049

REACTIONS (2)
  - ANGIOSARCOMA [None]
  - DISEASE RECURRENCE [None]
